FAERS Safety Report 6890713-4 (Version None)
Quarter: 2010Q3

REPORT INFORMATION
  Report Type: 
  Country: None (occurrence: None)
  Receive Date: 20100731
  Receipt Date: 20090220
  Transmission Date: 20110219
  Serious: No
  Sender: FDA-Public Use
  Company Number: US-PFIZER INC-2009175340

PATIENT
  Sex: Female
  Weight: 122 kg

DRUGS (9)
  1. LIPITOR [Suspect]
     Indication: BLOOD CHOLESTEROL INCREASED
     Dosage: UNK
     Dates: start: 20090101, end: 20090101
  2. LOVASTATIN [Suspect]
     Indication: BLOOD CHOLESTEROL ABNORMAL
     Dosage: UNK
     Dates: start: 20090101, end: 20090101
  3. METOPROLOL [Concomitant]
     Dosage: UNK
  4. LISINOPRIL [Concomitant]
     Dosage: UNK
  5. PRILOSEC [Concomitant]
     Dosage: UNK
  6. ACICLOVIR [Concomitant]
     Dosage: UNK
  7. DAPSONE [Concomitant]
     Dosage: UNK
  8. ATIVAN [Concomitant]
     Indication: NERVOUSNESS
     Dosage: UNK
  9. AMBIEN [Concomitant]
     Dosage: UNK

REACTIONS (2)
  - AGGRESSION [None]
  - AGITATION [None]
